FAERS Safety Report 8003263-9 (Version None)
Quarter: 2011Q4

REPORT INFORMATION
  Report Type: 
  Country: None (occurrence: None)
  Receive Date: 20111222
  Receipt Date: 20111219
  Transmission Date: 20120403
  Serious: Yes (Other)
  Sender: FDA-Public Use
  Company Number: PHHY2010CA32225

PATIENT
  Sex: Female

DRUGS (7)
  1. ZOLEDRONOC ACID [Suspect]
     Indication: OSTEOPOROSIS
     Dosage: 5 MG, UNK
     Route: 042
     Dates: start: 20100112
  2. VITAMIN D [Concomitant]
     Dosage: 400 UKN, BID
  3. CELEBREX [Concomitant]
     Indication: ARTHRALGIA
     Dosage: 200 UKN, QD
  4. CALCIUM [Concomitant]
  5. ZOLEDRONOC ACID [Suspect]
     Dosage: 5 MG, UNK
     Route: 042
     Dates: start: 20110124
  6. NEXIUM [Concomitant]
     Dosage: UNK UKN, UNK
  7. COLACE [Concomitant]
     Dosage: 100 MG, UNK

REACTIONS (9)
  - PAIN [None]
  - RENAL CANCER [None]
  - ARTHRALGIA [None]
  - INFLUENZA LIKE ILLNESS [None]
  - BACK PAIN [None]
  - BONE PAIN [None]
  - INTERVERTEBRAL DISC COMPRESSION [None]
  - MYALGIA [None]
  - NASOPHARYNGITIS [None]
